FAERS Safety Report 13517188 (Version 3)
Quarter: 2017Q3

REPORT INFORMATION
  Report Type: Spontaneous
  Country: NO (occurrence: NO)
  Receive Date: 20170505
  Receipt Date: 20170726
  Transmission Date: 20171127
  Serious: Yes (Hospitalization, Other)
  Sender: FDA-Public Use
  Company Number: NO-ROCHE-1930754

PATIENT
  Sex: Female

DRUGS (8)
  1. ALBYL-E [Concomitant]
     Active Substance: ASPIRIN\MAGNESIUM OXIDE
     Route: 065
  2. NEXIUM [Concomitant]
     Active Substance: ESOMEPRAZOLE MAGNESIUM
     Dosage: IF NEEDED
     Route: 065
  3. IMOVANE [Concomitant]
     Active Substance: ZOPICLONE
     Route: 065
  4. ZELBORAF [Suspect]
     Active Substance: VEMURAFENIB
     Indication: MALIGNANT MELANOMA
     Dosage: 4 TABLETS 240 MG IN THE MORNING AND 3 TABLETS 240 MG IN THE AFTERNOON
     Route: 065
     Dates: start: 20150915
  5. PANODIL [Concomitant]
     Active Substance: ACETAMINOPHEN
     Route: 065
  6. PLAQUENIL [Concomitant]
     Active Substance: HYDROXYCHLOROQUINE SULFATE
     Route: 065
  7. OXYNORM [Concomitant]
     Active Substance: OXYCODONE HYDROCHLORIDE
     Dosage: IF NEEDED
     Route: 065
  8. OXYCONTIN [Concomitant]
     Active Substance: OXYCODONE HYDROCHLORIDE
     Route: 065

REACTIONS (4)
  - Spinal compression fracture [Unknown]
  - Osteoporosis [Unknown]
  - Back pain [Not Recovered/Not Resolved]
  - Compression fracture [Unknown]
